FAERS Safety Report 9274326 (Version 2)
Quarter: 2013Q2

REPORT INFORMATION
  Report Type: Spontaneous
  Country: US (occurrence: US)
  Receive Date: 20130506
  Receipt Date: 20130604
  Transmission Date: 20140414
  Serious: No
  Sender: FDA-Public Use
  Company Number: US-AMGEN-USASP2013028805

PATIENT
  Age: 46 Year
  Sex: Male
  Weight: 73.47 kg

DRUGS (7)
  1. ENBREL [Suspect]
     Indication: PSORIASIS
     Dosage: UNK
     Dates: start: 20090414
  2. EFFEXOR [Concomitant]
     Dosage: UNK
  3. VISTARIL                           /00058402/ [Concomitant]
     Dosage: UNK
  4. PREVACID [Concomitant]
     Indication: GASTROOESOPHAGEAL REFLUX DISEASE
     Dosage: 30 MG, QD
  5. CELEXA                             /00582602/ [Concomitant]
     Dosage: 10 MG, QD
  6. TESTOSTERONE [Concomitant]
     Dosage: 100 MG/ML, QD
  7. AMBIEN [Concomitant]
     Dosage: 10 MG, QD

REACTIONS (5)
  - Fatigue [Recovered/Resolved]
  - Nausea [Not Recovered/Not Resolved]
  - Dizziness [Not Recovered/Not Resolved]
  - Vomiting [Not Recovered/Not Resolved]
  - Vertigo [Recovered/Resolved]
